FAERS Safety Report 11376872 (Version 5)
Quarter: 2015Q4

REPORT INFORMATION
  Report Type: Spontaneous
  Country: US (occurrence: US)
  Receive Date: 20150813
  Receipt Date: 20151001
  Transmission Date: 20160304
  Serious: Yes (Other)
  Sender: FDA-Public Use
  Company Number: US-GLAXOSMITHKLINE-US2015GSK115412

PATIENT
  Sex: Female

DRUGS (3)
  1. TYKERB [Suspect]
     Active Substance: LAPATINIB DITOSYLATE
     Dosage: 1500 MG, QD
     Dates: start: 20150804
  2. ARIMIDEX [Concomitant]
     Active Substance: ANASTROZOLE
  3. TYKERB [Suspect]
     Active Substance: LAPATINIB DITOSYLATE
     Indication: BONE CANCER
     Dosage: 1500 MG, QD
     Route: 048
     Dates: start: 20150801

REACTIONS (7)
  - Dyspepsia [Unknown]
  - Burn oesophageal [Unknown]
  - Nausea [Unknown]
  - Stomatitis [Unknown]
  - Radiotherapy [Unknown]
  - Dysphagia [Unknown]
  - Rash [Unknown]
